FAERS Safety Report 15489972 (Version 1)
Quarter: 2018Q4

REPORT INFORMATION
  Report Type: Report from Study
  Country: None (occurrence: TR)
  Receive Date: 20181011
  Receipt Date: 20181011
  Transmission Date: 20190205
  Serious: Yes (Hospitalization)
  Sender: FDA-Public Use
  Company Number: TR-ABBVIE-18S-161-2502210-00

PATIENT
  Age: 63 Year
  Sex: Male
  Weight: 62 kg

DRUGS (4)
  1. MADOPAR HBS [Concomitant]
     Active Substance: BENSERAZIDE HYDROCHLORIDE\LEVODOPA
     Indication: PARKINSON^S DISEASE
     Route: 048
     Dates: start: 2014
  2. PK-MERZ [Concomitant]
     Active Substance: AMANTADINE
     Indication: PARKINSON^S DISEASE
     Dosage: 2X2
     Route: 048
     Dates: start: 2016
  3. LEVODOPA [Concomitant]
     Active Substance: LEVODOPA
     Indication: PRODUCT USED FOR UNKNOWN INDICATION
     Route: 048
     Dates: start: 20181008
  4. DUODOPA [Suspect]
     Active Substance: CARBIDOPA\LEVODOPA
     Indication: PARKINSON^S DISEASE
     Dosage: MORNING DOSE (ML): 5.50 CONTINUING DOSE (ML): 1.80 EXTRA DOSE (ML): 1.50
     Route: 050
     Dates: start: 20171026, end: 20181008

REACTIONS (4)
  - Stoma site erythema [Not Recovered/Not Resolved]
  - Eczema [Not Recovered/Not Resolved]
  - Stoma site discharge [Not Recovered/Not Resolved]
  - Rash [Recovered/Resolved]

NARRATIVE: CASE EVENT DATE: 20180924
